FAERS Safety Report 8201104-8 (Version None)
Quarter: 2012Q1

REPORT INFORMATION
  Report Type: 
  Country: None (occurrence: None)
  Receive Date: 20120312
  Receipt Date: 20111021
  Transmission Date: 20120608
  Serious: No
  Sender: FDA-Public Use
  Company Number: US-ABBOTT-11P-163-0706274-00

PATIENT
  Sex: Female
  Weight: 70.37 kg

DRUGS (4)
  1. PRENEXA [Concomitant]
     Indication: VITAMIN SUPPLEMENTATION
     Route: 048
     Dates: start: 20100801
  2. RHOGAM [Concomitant]
     Indication: PRODUCT USED FOR UNKNOWN INDICATION
     Route: 030
  3. LUPRON DEPOT [Suspect]
     Indication: PRODUCT USED FOR UNKNOWN INDICATION
     Route: 050
  4. RHOGAM [Concomitant]
     Route: 030

REACTIONS (2)
  - ACCIDENTAL EXPOSURE [None]
  - BURNING SENSATION [None]
